FAERS Safety Report 7185325-1 (Version None)
Quarter: 2010Q4

REPORT INFORMATION
  Report Type: 
  Country: None (occurrence: None)
  Receive Date: 20101222
  Receipt Date: 20100602
  Transmission Date: 20110411
  Serious: No
  Sender: FDA-Public Use
  Company Number: US-AMGEN-KDL414138

PATIENT

DRUGS (6)
  1. ENBREL [Suspect]
     Indication: PSORIASIS
     Dosage: 50 MG, 2 TIMES/WK
     Dates: start: 20061211, end: 20100101
  2. HALOBETASOL PROPRIONATE [Concomitant]
     Dosage: .05 %, UNK
  3. SERTRALINE HYDROCHLORIDE [Concomitant]
     Dosage: UNK UNK, UNK
     Dates: start: 20070103
  4. CEPHALEXIN MONOHYDRATE [Concomitant]
     Dosage: 500 MG, BID
     Dates: start: 20090424, end: 20090504
  5. TRIAMCINOLONE ACETONIDE [Concomitant]
     Dosage: 40 MG, UNK
     Route: 030
     Dates: start: 20090424
  6. UNSPECIFIED TOPICAL PRODUCT [Concomitant]
     Dosage: UNK UNK, UNK
     Dates: start: 20090508, end: 20090509

REACTIONS (1)
  - ALANINE AMINOTRANSFERASE INCREASED [None]
